FAERS Safety Report 13670984 (Version 1)
Quarter: 2017Q2

REPORT INFORMATION
  Report Type: Spontaneous
  Country: US (occurrence: US)
  Receive Date: 20170620
  Receipt Date: 20170620
  Transmission Date: 20170830
  Serious: No
  Sender: FDA-Public Use
  Company Number: US-ROCHE-1240200

PATIENT
  Age: 85 Year
  Sex: Male

DRUGS (2)
  1. XELODA [Suspect]
     Active Substance: CAPECITABINE
     Dosage: IN THE EVENING
     Route: 048
     Dates: start: 20130420
  2. XELODA [Suspect]
     Active Substance: CAPECITABINE
     Indication: COLON CANCER
     Dosage: IN THE MORNING
     Route: 048
     Dates: start: 20130420

REACTIONS (4)
  - Blister [Not Recovered/Not Resolved]
  - Ageusia [Not Recovered/Not Resolved]
  - Erythema [Not Recovered/Not Resolved]
  - Stomatitis [Not Recovered/Not Resolved]

NARRATIVE: CASE EVENT DATE: 20130621
